FAERS Safety Report 4354576-3 (Version None)
Quarter: 2004Q2

REPORT INFORMATION
  Report Type: 
  Country: None (occurrence: None)
  Receive Date: 20040503
  Receipt Date: 20040422
  Transmission Date: 20050107
  Serious: Yes (Death, Hospitalization)
  Sender: FDA-Public Use
  Company Number: US-JNJFOC-20040405903

PATIENT
  Age: 79 Year
  Sex: Female

DRUGS (4)
  1. LEVAQUIN [Suspect]
     Indication: DRUG USE FOR UNKNOWN INDICATION
     Dates: start: 20031223
  2. CLINDAMYCIN HCL [Concomitant]
  3. FLUCONAZOLE [Concomitant]
  4. TPN (TPN) [Concomitant]

REACTIONS (5)
  - ADENOCARCINOMA [None]
  - BLOOD CULTURE POSITIVE [None]
  - CENTRAL VENOUS CATHETERISATION [None]
  - MYOCARDIAL INFARCTION [None]
  - STAPHYLOCOCCAL INFECTION [None]
